FAERS Safety Report 14607198 (Version 2)
Quarter: 2018Q2

REPORT INFORMATION
  Report Type: Spontaneous
  Country: US (occurrence: US)
  Receive Date: 20180307
  Receipt Date: 20180419
  Transmission Date: 20180711
  Serious: No
  Sender: FDA-Public Use
  Company Number: US-ASTRAZENECA-2018SE17196

PATIENT
  Age: 27441 Day
  Sex: Female
  Weight: 38.3 kg

DRUGS (1)
  1. SYMBICORT [Suspect]
     Active Substance: BUDESONIDE\FORMOTEROL FUMARATE DIHYDRATE
     Indication: PULMONARY FIBROSIS
     Dosage: 80/4.5MCG 2 PUFFS TWICE DAILY
     Route: 055

REACTIONS (8)
  - Drug effect decreased [Unknown]
  - Off label use [Not Recovered/Not Resolved]
  - Tongue discomfort [Unknown]
  - Product use in unapproved indication [Unknown]
  - Dyspnoea [Unknown]
  - Device malfunction [Unknown]
  - Intentional device misuse [Unknown]
  - Product use issue [Unknown]

NARRATIVE: CASE EVENT DATE: 20180207
